FAERS Safety Report 21524456 (Version 6)
Quarter: 2022Q4

REPORT INFORMATION
  Report Type: Report from Study
  Country: DE (occurrence: DE)
  Receive Date: 20221029
  Receipt Date: 20221221
  Transmission Date: 20230113
  Serious: Yes (Hospitalization, Other)
  Sender: FDA-Public Use
  Company Number: DE-NOVARTISPH-NVSC2022DE236321

PATIENT
  Age: 45 Year
  Sex: Female

DRUGS (3)
  1. DABRAFENIB [Suspect]
     Active Substance: DABRAFENIB
     Indication: Malignant melanoma
     Dosage: 150 MG
     Route: 065
     Dates: start: 20211002, end: 20220916
  2. TRAMETINIB [Suspect]
     Active Substance: TRAMETINIB
     Indication: Malignant melanoma
     Dosage: 2 MG
     Route: 065
     Dates: start: 20211002, end: 20220916
  3. VITAMIN D3 [Concomitant]
     Active Substance: CHOLECALCIFEROL
     Indication: Product used for unknown indication
     Dosage: UNK
     Route: 065

REACTIONS (20)
  - Urosepsis [Recovered/Resolved with Sequelae]
  - Illness [Unknown]
  - Urinary tract infection [Recovered/Resolved]
  - Acute kidney injury [Recovered/Resolved with Sequelae]
  - Malaise [Unknown]
  - Oliguria [Unknown]
  - Infection [Unknown]
  - Pyrexia [Unknown]
  - Tachycardia [Unknown]
  - Urine output decreased [Unknown]
  - Klebsiella infection [Unknown]
  - Pyelonephritis [Recovered/Resolved with Sequelae]
  - Sinus tachycardia [Unknown]
  - Splenomegaly [Unknown]
  - Gastrointestinal hypermotility [Unknown]
  - Renal cyst [Unknown]
  - Pancreatic steatosis [Unknown]
  - Hepatic calcification [Unknown]
  - Pleural effusion [Unknown]
  - Cardiomegaly [Unknown]

NARRATIVE: CASE EVENT DATE: 20220916
